FAERS Safety Report 6095235-9 (Version None)
Quarter: 2009Q1

REPORT INFORMATION
  Report Type: 
  Country: None (occurrence: None)
  Receive Date: 20090227
  Receipt Date: 20080214
  Transmission Date: 20090719
  Serious: Yes (Other)
  Sender: FDA-Public Use
  Company Number: A0710288A

PATIENT
  Age: 22 Year
  Sex: Male

DRUGS (10)
  1. LAMICTAL [Suspect]
     Route: 048
  2. QUETIAPINE FUMARATE [Suspect]
  3. CLOZAPINE [Suspect]
  4. OLANZAPINE [Suspect]
  5. ARIPIPRAZOLE [Suspect]
  6. ZIPRASIDONE HCL [Suspect]
  7. CARBAMAZEPINE [Suspect]
  8. CLONAZEPAM [Suspect]
  9. PAROXETINE HCL [Suspect]
  10. RISPERIDONE [Suspect]

REACTIONS (2)
  - CONVULSION [None]
  - MANIA [None]
